FAERS Safety Report 4673827-9 (Version None)
Quarter: 2005Q2

REPORT INFORMATION
  Report Type: 
  Country: None (occurrence: None)
  Receive Date: 20050523
  Receipt Date: 20050125
  Transmission Date: 20051028
  Serious: Yes (Other)
  Sender: FDA-Public Use
  Company Number: MED000011

PATIENT
  Age: 30 Year
  Sex: Female

DRUGS (1)
  1. LACTATED RINGER'S [Suspect]
     Indication: CAESAREAN SECTION
     Dosage: ONCE; INTRAVENOUS
     Route: 042
     Dates: start: 20050125, end: 20050125

REACTIONS (1)
  - BRONCHOSPASM [None]
